FAERS Safety Report 8604266-3 (Version None)
Quarter: 2012Q3

REPORT INFORMATION
  Report Type: 
  Country: None (occurrence: None)
  Receive Date: 20120820
  Receipt Date: 20120808
  Transmission Date: 20120928
  Serious: Yes (Hospitalization)
  Sender: FDA-Public Use
  Company Number: US-JNJFOC-20120601007

PATIENT
  Sex: Male
  Weight: 93 kg

DRUGS (19)
  1. DUTASTERIDE [Suspect]
     Indication: PROSTATE CANCER METASTATIC
     Route: 048
     Dates: start: 20120525, end: 20120528
  2. ASPIRIN [Concomitant]
     Route: 065
  3. TRICOR [Concomitant]
     Route: 065
  4. DUTASTERIDE [Suspect]
     Route: 048
     Dates: start: 20120626, end: 20120807
  5. ISORDIL [Concomitant]
     Route: 065
  6. ABIRATERONE ACETATE [Suspect]
     Route: 048
     Dates: start: 20120614, end: 20120622
  7. COLACE [Concomitant]
     Route: 065
  8. ABIRATERONE ACETATE [Suspect]
     Indication: PROSTATE CANCER METASTATIC
     Route: 048
     Dates: start: 20120329, end: 20120529
  9. DUTASTERIDE [Suspect]
     Route: 048
     Dates: start: 20120614, end: 20120622
  10. LOPRESSOR [Concomitant]
     Route: 065
  11. ZANTAC [Concomitant]
     Route: 065
  12. MULTI-VITAMINS [Concomitant]
     Route: 065
  13. ABIRATERONE ACETATE [Suspect]
     Route: 048
     Dates: start: 20120626, end: 20120807
  14. GABAPENTIN [Concomitant]
     Route: 065
  15. ROPINIROLE [Concomitant]
     Route: 065
  16. PRAVACHOL [Concomitant]
     Route: 065
  17. TRAZODONE HYDROCHLORIDE [Concomitant]
     Route: 065
  18. ASPIRIN [Concomitant]
     Route: 065
  19. PREDNISONE TAB [Suspect]
     Indication: PROSTATE CANCER METASTATIC
     Route: 048
     Dates: end: 20120529

REACTIONS (5)
  - URINARY TRACT INFECTION [None]
  - PNEUMONIA [None]
  - PANCREATITIS ACUTE [None]
  - LIPASE INCREASED [None]
  - ANGINA UNSTABLE [None]
